FAERS Safety Report 5614184-0 (Version None)
Quarter: 2008Q1

REPORT INFORMATION
  Report Type: 
  Country: None (occurrence: None)
  Receive Date: 20080205
  Receipt Date: 20080131
  Transmission Date: 20080703
  Serious: Yes (Other)
  Sender: FDA-Public Use
  Company Number: B0506421A

PATIENT
  Age: 63 Year
  Sex: Female

DRUGS (2)
  1. AMOXICILLIN + CLAVULANATE POTASSIUM [Suspect]
     Indication: SINUSITIS
     Route: 048
     Dates: start: 20080125, end: 20080125
  2. LEVOTHYROX [Concomitant]
     Indication: HYPOTHYROIDISM

REACTIONS (4)
  - ANAPHYLACTIC SHOCK [None]
  - PARAESTHESIA [None]
  - PARAESTHESIA ORAL [None]
  - RESPIRATORY DISORDER [None]
